FAERS Safety Report 5928779-8 (Version None)
Quarter: 2008Q4

REPORT INFORMATION
  Report Type: 
  Country: None (occurrence: None)
  Receive Date: 20081023
  Receipt Date: 20081023
  Transmission Date: 20090506
  Serious: No
  Sender: FDA-Public Use
  Company Number: None

PATIENT

DRUGS (1)
  1. DURAGESIC-100 [Suspect]
     Dosage: 100 MG
     Route: 062

REACTIONS (1)
  - UNEVALUABLE EVENT [None]
